FAERS Safety Report 7009265-3 (Version None)
Quarter: 2010Q3

REPORT INFORMATION
  Report Type: 
  Country: None (occurrence: None)
  Receive Date: 20100923
  Receipt Date: 20100914
  Transmission Date: 20110219
  Serious: Yes (Hospitalization)
  Sender: FDA-Public Use
  Company Number: JP-BRISTOL-MYERS SQUIBB COMPANY-14597371

PATIENT
  Age: 56 Year
  Sex: Male
  Weight: 92 kg

DRUGS (4)
  1. ABILIFY [Suspect]
     Indication: SCHIZOPHRENIA
     Dosage: 24MG, QD ON UNK DATE. QM
     Route: 048
     Dates: start: 20060927
  2. DEPAKENE [Suspect]
     Dosage: TABS
     Route: 048
     Dates: start: 20060527
  3. AMOBAN [Concomitant]
     Dosage: TAB
     Route: 048
     Dates: start: 20060921
  4. EVAMYL [Concomitant]
     Dosage: TABLET
     Route: 048
     Dates: start: 20060921

REACTIONS (4)
  - ABNORMAL SENSATION IN EYE [None]
  - GASTROINTESTINAL HAEMORRHAGE [None]
  - HIATUS HERNIA [None]
  - REFLUX OESOPHAGITIS [None]
